FAERS Safety Report 14387076 (Version 1)
Quarter: 2018Q1

REPORT INFORMATION
  Report Type: Spontaneous
  Country: US (occurrence: US)
  Receive Date: 20180115
  Receipt Date: 20180115
  Transmission Date: 20180509
  Serious: Yes (Other)
  Sender: FDA-Public Use
  Company Number: US-SA-2017SA176704

PATIENT
  Age: 73 Year
  Sex: Female
  Weight: 77 kg

DRUGS (6)
  1. TAXOTERE [Suspect]
     Active Substance: DOCETAXEL
     Indication: OVARIAN CANCER
     Route: 051
     Dates: start: 20130731, end: 20130731
  2. PARAPLATIN [Concomitant]
     Active Substance: CARBOPLATIN
  3. GEMZAR [Concomitant]
     Active Substance: GEMCITABINE HYDROCHLORIDE
  4. TAXOL [Concomitant]
     Active Substance: PACLITAXEL
  5. AVASTIN [Concomitant]
     Active Substance: BEVACIZUMAB
  6. TAXOTERE [Suspect]
     Active Substance: DOCETAXEL
     Indication: OVARIAN CANCER
     Route: 051
     Dates: start: 20140109, end: 20140109

REACTIONS (4)
  - Anxiety [Unknown]
  - Alopecia [Not Recovered/Not Resolved]
  - Emotional distress [Unknown]
  - Impaired quality of life [Unknown]

NARRATIVE: CASE EVENT DATE: 20140201
